FAERS Safety Report 9891613 (Version 1)
Quarter: 2014Q1

REPORT INFORMATION
  Report Type: Spontaneous
  Country: US (occurrence: None)
  Receive Date: 20140210
  Receipt Date: 20140210
  Transmission Date: 20141002
  Serious: Yes (Death)
  Sender: FDA-Public Use
  Company Number: 2014020001

PATIENT
  Age: 49 Year
  Sex: Female

DRUGS (7)
  1. ZOLPIDEM [Suspect]
  2. FENTANYL (FENTANYL) [Suspect]
  3. ACETAMINOPHEN/HYDROCODONE [Suspect]
  4. CITALOPRAM(CITALOPRAM) [Concomitant]
  5. SKELETAL MUSCLE RELAXANT [Concomitant]
  6. MIRTAZAPINE(MIRTAZAPINE) [Concomitant]
  7. PROMETHAZINE(PROMETHAZINE) [Suspect]

REACTIONS (1)
  - Drug abuse [None]
